FAERS Safety Report 20859532 (Version 1)
Quarter: 2022Q2

REPORT INFORMATION
  Report Type: Spontaneous
  Country: DE (occurrence: DE)
  Receive Date: 20220523
  Receipt Date: 20220523
  Transmission Date: 20220720
  Serious: Yes (Death, Life-Threatening, Hospitalization, Other)
  Sender: FDA-Public Use
  Company Number: DE-002147023-NVSC2021DE047645

PATIENT
  Sex: Female
  Weight: 60 kg

DRUGS (3)
  1. LETROZOLE [Suspect]
     Active Substance: LETROZOLE
     Indication: Breast cancer metastatic
     Dosage: 2.5 MILLIGRAM, ONCE A DAY
     Route: 048
     Dates: start: 20201104, end: 20210127
  2. KISQALI [Suspect]
     Active Substance: RIBOCICLIB
     Indication: Breast cancer metastatic
     Dosage: 600 MILLIGRAM, ONCE A DAY (QD (21 DAYS INTAKE, 7 DAYS PAUSE))
     Route: 048
     Dates: start: 20201104, end: 20201201
  3. KISQALI [Suspect]
     Active Substance: RIBOCICLIB
     Dosage: 400 MILLIGRAM, ONCE A DAY (QD (21 DAYS INTAKE, 7 DAYS PAUSE))
     Route: 048
     Dates: start: 20201202, end: 20210127

REACTIONS (3)
  - Death [Fatal]
  - Pulmonary embolism [Recovered/Resolved]
  - Fibrin D dimer increased [Unknown]

NARRATIVE: CASE EVENT DATE: 20210204
